FAERS Safety Report 5765586-3 (Version None)
Quarter: 2008Q2

REPORT INFORMATION
  Report Type: 
  Country: None (occurrence: None)
  Receive Date: 20080605
  Receipt Date: 20080529
  Transmission Date: 20081010
  Serious: Yes (Other)
  Sender: FDA-Public Use
  Company Number: CHNY2008JP02126

PATIENT
  Age: 59 Year
  Sex: Male

DRUGS (7)
  1. CLEMASTINE FUMARATE [Suspect]
     Dosage: ORAL
     Route: 048
     Dates: start: 20080519
  2. THEO-DUR [Concomitant]
  3. CLARITHROMYCIN [Concomitant]
  4. MUCOSTA (REBAMIPIDE) [Concomitant]
  5. ASVERIN (TIPEPIDINE HIBENZATE) [Concomitant]
  6. PROCATEROL HCL [Concomitant]
  7. SELTEPNON (TEPRENONE) [Concomitant]

REACTIONS (3)
  - AGRANULOCYTOSIS [None]
  - PYREXIA [None]
  - STOMATITIS [None]
